FAERS Safety Report 23449254 (Version 1)
Quarter: 2024Q1

REPORT INFORMATION
  Report Type: Spontaneous
  Country: JP (occurrence: JP)
  Receive Date: 20240129
  Receipt Date: 20240129
  Transmission Date: 20240410
  Serious: Yes (Hospitalization, Other)
  Sender: FDA-Public Use
  Company Number: None

PATIENT
  Age: 49 Year
  Sex: Female

DRUGS (20)
  1. PREDNISOLONE [Suspect]
     Active Substance: PREDNISOLONE
     Indication: Diffuse large B-cell lymphoma stage II
     Dosage: 50 MILLIGRAM/SQ. METER ON DAYS 2-6 EVERY 3 WEEKS (RECEIVED SIX CYCLES)
     Route: 048
  2. ETOPOSIDE [Suspect]
     Active Substance: ETOPOSIDE
     Indication: Diffuse large B-cell lymphoma stage II
     Dosage: 150 MILLIGRAM/SQ. METER, CYCLICAL ON DAYS 3-5 EVERY 3 WEEKS (RECEIVED 3 CYCLES)
     Route: 042
  3. ETOPOSIDE [Suspect]
     Active Substance: ETOPOSIDE
     Indication: Diffuse large B-cell lymphoma recurrent
     Dosage: 500 MILLIGRAM/SQ. METER ON DAYS -6 AND -4
     Route: 042
  4. CYCLOPHOSPHAMIDE [Suspect]
     Active Substance: CYCLOPHOSPHAMIDE
     Indication: Diffuse large B-cell lymphoma stage II
     Dosage: 750 MILLIGRAM/SQ. METER, CYCLICAL ON DAY 2 EVERY 3 WEEKS(RECEIVED SIX CYCLES)
     Route: 042
  5. CYCLOPHOSPHAMIDE [Suspect]
     Active Substance: CYCLOPHOSPHAMIDE
     Indication: Diffuse large B-cell lymphoma recurrent
     Dosage: 60 MILLIGRAM/KILOGRAM ON DAYS -7 AND -6
     Route: 042
  6. CYCLOPHOSPHAMIDE [Suspect]
     Active Substance: CYCLOPHOSPHAMIDE
     Indication: Chemotherapy
  7. DEXAMETHASONE [Suspect]
     Active Substance: DEXAMETHASONE
     Indication: Diffuse large B-cell lymphoma stage II
     Dosage: 40 MILLIGRAM, CYCLICAL ON DAYS 3-5 EVERY 3WEEKS (RECEIVED THREE CYCLES)
     Route: 042
  8. DEXAMETHASONE [Suspect]
     Active Substance: DEXAMETHASONE
     Indication: Diffuse large B-cell lymphoma recurrent
  9. RANIMUSTINE [Suspect]
     Active Substance: RANIMUSTINE
     Indication: Chemotherapy
     Dosage: 250 MILLIGRAM/SQ. METER ON DAYS -3 AND -2
     Route: 042
  10. RANIMUSTINE [Suspect]
     Active Substance: RANIMUSTINE
     Indication: Diffuse large B-cell lymphoma recurrent
  11. IFOSFAMIDE [Suspect]
     Active Substance: IFOSFAMIDE
     Indication: Diffuse large B-cell lymphoma stage II
     Dosage: 1500 MILLIGRAM/SQ. METER, CYCLICAL FOLLOWED BY MESNA I.V. ON DAYS 3-7 EVERY 3 WEEKS (RECEIVED 3 CYCL
     Route: 042
  12. IFOSFAMIDE [Suspect]
     Active Substance: IFOSFAMIDE
     Indication: Diffuse large B-cell lymphoma recurrent
  13. MESNA [Suspect]
     Active Substance: MESNA
     Indication: Diffuse large B-cell lymphoma stage II
     Dosage: UNK, CYCLICAL ON DAYS 3-7 EVERY 3 WEEKS (RECEIVED 3 CYCLES)
     Route: 042
  14. MESNA [Suspect]
     Active Substance: MESNA
     Indication: Diffuse large B-cell lymphoma recurrent
  15. RITUXIMAB [Suspect]
     Active Substance: RITUXIMAB
     Indication: Diffuse large B-cell lymphoma stage II
     Dosage: 375 MILLIGRAM/SQ. METER, CYCLICAL ON DAY 1 EVERY 3 WEEKS (RECEIVED SIX CYCLES)
     Route: 042
  16. RITUXIMAB [Suspect]
     Active Substance: RITUXIMAB
     Indication: Diffuse large B-cell lymphoma recurrent
     Dosage: 375 MILLIGRAM/SQ. METER, CYCLICAL ON DAY 1 EVERY 3 WEEKS (RECEIVED 3CYCLES)
     Route: 042
  17. CYTARABINE [Suspect]
     Active Substance: CYTARABINE
     Indication: Diffuse large B-cell lymphoma stage II
     Dosage: 100 MILLIGRAM/SQ. METER, CYCLICAL OVER 2 H ON DAYS 3-5 EVERY WEEKS (RECEIVED 3 CYCLES)
     Route: 042
  18. CYTARABINE [Suspect]
     Active Substance: CYTARABINE
     Indication: Diffuse large B-cell lymphoma recurrent
  19. DOXORUBICIN [Concomitant]
     Active Substance: DOXORUBICIN
     Indication: Diffuse large B-cell lymphoma stage II
     Dosage: 50 MILLIGRAM/SQ. METER, CYCLICAL ON DAY 2 EVERY 3 WEEKS (RECEIVED SIX CYCLES)
     Route: 042
  20. VINCRISTINE [Concomitant]
     Active Substance: VINCRISTINE
     Indication: Diffuse large B-cell lymphoma stage II
     Dosage: 1.4 MILLIGRAM/SQ. METER, CYCLICAL (CAPPED AT 2MG) ON DAY 2 EVERY 3 WEEKS (SIX CYCLES)
     Route: 042

REACTIONS (6)
  - Pulmonary veno-occlusive disease [Recovered/Resolved]
  - Right ventricular failure [Recovered/Resolved]
  - Pulmonary congestion [Recovered/Resolved]
  - Pulmonary hypertension [Recovered/Resolved]
  - Therapy partial responder [Unknown]
  - Off label use [Unknown]
